FAERS Safety Report 4300800-2 (Version None)
Quarter: 2004Q1

REPORT INFORMATION
  Report Type: 
  Country: None (occurrence: None)
  Receive Date: 20040218
  Receipt Date: 20040204
  Transmission Date: 20041129
  Serious: Yes (Death, Hospitalization)
  Sender: FDA-Public Use
  Company Number: US-JNJFOC-20040100119

PATIENT
  Age: 68 Year
  Sex: Male
  Weight: 91.173 kg

DRUGS (17)
  1. REMICADE [Suspect]
     Indication: CROHN'S DISEASE
     Dosage: SEE IMAGE
     Dates: start: 20030601
  2. REMICADE [Suspect]
     Indication: CROHN'S DISEASE
     Dosage: SEE IMAGE
     Dates: start: 20031120
  3. REMICADE [Suspect]
     Indication: CROHN'S DISEASE
     Dosage: SEE IMAGE
     Dates: start: 20031204
  4. COUMADIN [Concomitant]
  5. ENTORCORT (BUDESONIDE) [Concomitant]
  6. TRENTAL [Concomitant]
  7. MULTIVITAMIN (MULTIVITAMINS) [Concomitant]
  8. NIACIN [Concomitant]
  9. PRILOSEC [Concomitant]
  10. MIDRIN (MIDRID) [Concomitant]
  11. ANTIVERT [Concomitant]
  12. LORTAB [Concomitant]
  13. PREDNISONE [Concomitant]
  14. VALIUM [Concomitant]
  15. PROPRANOLOL [Concomitant]
  16. SOLU-MEDROL [Concomitant]
  17. BENADRYL [Concomitant]

REACTIONS (11)
  - ASPERGILLOSIS [None]
  - ATELECTASIS [None]
  - BRONCHITIS [None]
  - DEEP VEIN THROMBOSIS [None]
  - INTESTINAL OBSTRUCTION [None]
  - PNEUMONIA ASPERGILLUS [None]
  - PNEUMOTHORAX [None]
  - RECTAL HAEMORRHAGE [None]
  - RESPIRATORY FAILURE [None]
  - SINUSITIS [None]
  - TRACHEITIS [None]
